FAERS Safety Report 5475172-0 (Version None)
Quarter: 2007Q4

REPORT INFORMATION
  Report Type: 
  Country: None (occurrence: None)
  Receive Date: 20071002
  Receipt Date: 20070920
  Transmission Date: 20080405
  Serious: Yes (Other)
  Sender: FDA-Public Use
  Company Number: US-PFIZER INC-2007080791

PATIENT
  Sex: Female
  Weight: 95.454 kg

DRUGS (10)
  1. CHANTIX [Suspect]
     Indication: SMOKING CESSATION THERAPY
  2. PROZAC [Concomitant]
  3. XANAX [Concomitant]
  4. POTASSIUM CHLORIDE [Concomitant]
  5. ZETIA [Concomitant]
  6. STOOL SOFTENER [Concomitant]
  7. ASPIRIN [Concomitant]
  8. DIOVAN [Concomitant]
  9. HYDROCHLOROTHIAZIDE [Concomitant]
  10. TRAZODONE HCL [Concomitant]

REACTIONS (3)
  - INSOMNIA [None]
  - MEDICATION ERROR [None]
  - NEUROPATHY PERIPHERAL [None]
